FAERS Safety Report 16551111 (Version 1)
Quarter: 2019Q3

REPORT INFORMATION
  Report Type: Other
  Country: CA (occurrence: CA)
  Receive Date: 20190710
  Receipt Date: 20190710
  Transmission Date: 20191004
  Serious: Yes (Other)
  Sender: FDA-Public Use
  Company Number: CA-APOTEX-2019AP017726

PATIENT
  Age: 34 Year
  Sex: Female

DRUGS (1)
  1. LETROZOLE. [Suspect]
     Active Substance: LETROZOLE
     Indication: MANAGEMENT OF REPRODUCTION
     Dosage: 10 MG, QD
     Route: 048

REACTIONS (6)
  - Ovarian enlargement [Recovering/Resolving]
  - Pelvic fluid collection [Recovering/Resolving]
  - Ovarian cyst ruptured [Recovering/Resolving]
  - Paraesthesia [Recovering/Resolving]
  - Hypoaesthesia [Recovering/Resolving]
  - Dizziness [Recovering/Resolving]
